FAERS Safety Report 19442092 (Version 1)
Quarter: 2021Q2

REPORT INFORMATION
  Report Type: Spontaneous
  Country: US (occurrence: US)
  Receive Date: 20210617
  Receipt Date: 20210617
  Transmission Date: 20210717
  Serious: Yes (Hospitalization)
  Sender: FDA-Public Use
  Company Number: None

PATIENT
  Age: 48 Year
  Sex: Female

DRUGS (12)
  1. GILENYA [Suspect]
     Active Substance: FINGOLIMOD HYDROCHLORIDE
     Indication: MULTIPLE SCLEROSIS
     Route: 048
     Dates: start: 20210319
  2. ASPIRIN. [Concomitant]
     Active Substance: ASPIRIN
  3. DICLOFENAC DR [Concomitant]
     Active Substance: DICLOFENAC SODIUM
  4. HYDROCO/APAP [Concomitant]
     Active Substance: ACETAMINOPHEN\HYDROCODONE
  5. MODAFINIL. [Concomitant]
     Active Substance: MODAFINIL
  6. ZOLPIDEM [Concomitant]
     Active Substance: ZOLPIDEM TARTRATE
  7. SUMATRIPTAN. [Concomitant]
     Active Substance: SUMATRIPTAN
  8. DALFAMPRIDINE. [Suspect]
     Active Substance: DALFAMPRIDINE
     Indication: MULTIPLE SCLEROSIS
     Route: 048
     Dates: start: 20210327
  9. CLONAZEPAM. [Concomitant]
     Active Substance: CLONAZEPAM
  10. MUPIROCIN OIN [Concomitant]
  11. VERAPAMIL ER [Concomitant]
     Active Substance: VERAPAMIL HYDROCHLORIDE
  12. PROTRIPTLYN [Concomitant]

REACTIONS (1)
  - Balance disorder [None]

NARRATIVE: CASE EVENT DATE: 202104
